FAERS Safety Report 7342822-3 (Version None)
Quarter: 2011Q1

REPORT INFORMATION
  Report Type: 
  Country: None (occurrence: None)
  Receive Date: 20110228
  Receipt Date: 20110218
  Transmission Date: 20110831
  Serious: Yes (Death, Other)
  Sender: FDA-Public Use
  Company Number: JP-ACCORD-008142

PATIENT
  Age: 78 Year
  Sex: Female

DRUGS (1)
  1. IRINOTECAN HCL [Suspect]
     Indication: SMALL CELL LUNG CANCER EXTENSIVE STAGE

REACTIONS (5)
  - SMALL CELL LUNG CANCER EXTENSIVE STAGE [None]
  - DIARRHOEA [None]
  - PERFORMANCE STATUS DECREASED [None]
  - FEBRILE NEUTROPENIA [None]
  - NEOPLASM MALIGNANT [None]
